FAERS Safety Report 23740526 (Version 1)
Quarter: 2024Q2

REPORT INFORMATION
  Report Type: Spontaneous
  Country: EG (occurrence: EG)
  Receive Date: 20240415
  Receipt Date: 20240415
  Transmission Date: 20240715
  Serious: Yes (Life-Threatening, Hospitalization, Other)
  Sender: FDA-Public Use
  Company Number: EG-NOVOPROD-1202205

PATIENT
  Sex: Male

DRUGS (6)
  1. ACTRAPID [Suspect]
     Active Substance: INSULIN HUMAN
     Indication: Diabetes mellitus
     Dosage: UNK
     Dates: start: 2015, end: 2017
  2. ACTRAPID [Suspect]
     Active Substance: INSULIN HUMAN
     Dosage: UNK
  3. ACTRAPID [Suspect]
     Active Substance: INSULIN HUMAN
     Dosage: UNK
  4. INSULIN HUMAN [Suspect]
     Active Substance: INSULIN HUMAN
     Dosage: UNK
  5. INSULIN HUMAN [Suspect]
     Active Substance: INSULIN HUMAN
     Indication: Diabetes mellitus
     Dosage: UNK
     Dates: start: 2008, end: 2014
  6. LANTUS [Concomitant]
     Active Substance: INSULIN GLARGINE
     Indication: Product used for unknown indication
     Dosage: UNK
     Dates: start: 2015, end: 2017

REACTIONS (5)
  - Cerebrovascular accident [Unknown]
  - Blindness [Unknown]
  - Hyperglycaemia [Unknown]
  - Angiopathy [Unknown]
  - Cardiac disorder [Unknown]

NARRATIVE: CASE EVENT DATE: 20140101
